FAERS Safety Report 7507391-3 (Version None)
Quarter: 2011Q2

REPORT INFORMATION
  Report Type: 
  Country: None (occurrence: None)
  Receive Date: 20110526
  Receipt Date: 20110517
  Transmission Date: 20111010
  Serious: Yes (Hospitalization, Other)
  Sender: FDA-Public Use
  Company Number: US-AMGEN-USACT2011025381

PATIENT

DRUGS (4)
  1. CYCLOPHOSPHAMIDE [Suspect]
     Indication: HODGKIN'S DISEASE
     Dosage: 50 MG/KG, UNK
     Route: 042
  2. FILGRASTIM [Suspect]
     Indication: HODGKIN'S DISEASE
  3. RITUXIMAB [Suspect]
     Indication: HODGKIN'S DISEASE
     Dosage: 375 MG/M2, UNK
     Route: 042
  4. MESNA [Suspect]
     Indication: HODGKIN'S DISEASE
     Route: 065

REACTIONS (7)
  - FEBRILE NEUTROPENIA [None]
  - PANCYTOPENIA [None]
  - NEUTROPENIC INFECTION [None]
  - NEUTROPENIA [None]
  - RENAL FAILURE CHRONIC [None]
  - INFECTION [None]
  - CARDIOMYOPATHY [None]
